FAERS Safety Report 16922244 (Version 2)
Quarter: 2019Q4

REPORT INFORMATION
  Report Type: Spontaneous
  Country: FR (occurrence: FR)
  Receive Date: 20191015
  Receipt Date: 20191113
  Transmission Date: 20200122
  Serious: Yes (Hospitalization)
  Sender: FDA-Public Use
  Company Number: FR-BAXTER-2019BAX019875

PATIENT
  Age: 25 Year
  Sex: Male
  Weight: 65 kg

DRUGS (27)
  1. CALCIUM CHLORIDE. [Suspect]
     Active Substance: CALCIUM CHLORIDE
     Indication: SUICIDE ATTEMPT
     Dosage: UNKNOWN
     Route: 042
     Dates: start: 20190820, end: 20190823
  2. ACTRAPID [Suspect]
     Active Substance: INSULIN HUMAN
     Indication: SUICIDE ATTEMPT
     Route: 042
     Dates: start: 20190820, end: 20190821
  3. MIDAZOLAM [Suspect]
     Active Substance: MIDAZOLAM HYDROCHLORIDE
     Indication: SUICIDE ATTEMPT
     Route: 042
     Dates: start: 20190821, end: 20190822
  4. BICARBONATE DE SODIUM BAXTER A 1,4 POUR CENT, SOLUTION INJECTABLE POUR [Suspect]
     Active Substance: SODIUM BICARBONATE
     Indication: SUICIDE ATTEMPT
     Dosage: UNKNOWN
     Route: 042
     Dates: start: 20190820
  5. NIMBEX [Suspect]
     Active Substance: CISATRACURIUM BESYLATE
     Indication: SUICIDE ATTEMPT
     Route: 042
     Dates: start: 20190820, end: 20190821
  6. LORMETAZEPAM [Concomitant]
     Active Substance: LORMETAZEPAM
     Indication: DEPRESSION
     Route: 048
     Dates: start: 20190714
  7. GLUCOSE 10% BAXTER, SOLUTION POUR PERFUSION [Suspect]
     Active Substance: DEXTROSE
     Route: 042
     Dates: start: 20190823, end: 20190823
  8. AMLODIPINE [Concomitant]
     Active Substance: AMLODIPINE BESYLATE
     Indication: HYPERTENSION
     Route: 048
  9. ACTIVATED CARBON [Concomitant]
     Indication: SUICIDE ATTEMPT
     Route: 048
     Dates: start: 20190820, end: 20190821
  10. GLUCOSE 10% BAXTER, SOLUTION POUR PERFUSION [Suspect]
     Active Substance: DEXTROSE
     Indication: SUICIDE ATTEMPT
     Route: 042
     Dates: start: 20190820, end: 20190823
  11. NORADRENALINE [Suspect]
     Active Substance: NOREPINEPHRINE
     Indication: SUICIDE ATTEMPT
     Dosage: UNKNOWN
     Route: 042
     Dates: start: 20190820, end: 20190822
  12. GLYPRESSIN [Suspect]
     Active Substance: TERLIPRESSIN
     Indication: SUICIDE ATTEMPT
     Route: 042
     Dates: start: 20190820, end: 20190821
  13. GLUCOSE 10% BAXTER, SOLUTION POUR PERFUSION [Suspect]
     Active Substance: DEXTROSE
     Route: 042
     Dates: start: 20190820, end: 20190822
  14. CERNEVIT [Suspect]
     Active Substance: VITAMINS
     Indication: SUICIDE ATTEMPT
     Route: 042
     Dates: start: 20190821, end: 20190823
  15. SODIUM CHLORIDE BIOSEDRA [Suspect]
     Active Substance: SODIUM CHLORIDE
     Indication: SUICIDE ATTEMPT
     Route: 042
     Dates: start: 20190820, end: 20190823
  16. ESMERON [Suspect]
     Active Substance: ROCURONIUM BROMIDE
     Indication: SUICIDE ATTEMPT
     Route: 042
     Dates: start: 20190820, end: 20190820
  17. TERLIPRESSIN (ACETATE DE) [Suspect]
     Active Substance: TERLIPRESSIN
     Indication: SUICIDE ATTEMPT
     Dosage: UNKNOWN
     Route: 042
     Dates: start: 20190820
  18. TERCIAN [Concomitant]
     Active Substance: CYAMEMAZINE
     Indication: DEPRESSION
     Route: 048
     Dates: start: 20190830
  19. PAROXETINE. [Concomitant]
     Active Substance: PAROXETINE
     Indication: DEPRESSION
     Route: 048
     Dates: start: 20190715
  20. EAU POUR PREPARATIONS INJECTABLES VIAFLO, SOLVANT POUR PR?PARATION PAR [Suspect]
     Active Substance: WATER
     Indication: SUICIDE ATTEMPT
     Route: 042
     Dates: start: 20190820, end: 20190823
  21. LOVENOX [Suspect]
     Active Substance: ENOXAPARIN SODIUM
     Indication: SUICIDE ATTEMPT
     Dosage: 8000 IU ANTI-XA/ 0.8 ML, SOLUTION FOR INJECTION (S.C.) IN AMPOULE
     Route: 058
     Dates: start: 20190821, end: 20190822
  22. INTRALIPIDE [Suspect]
     Active Substance: SOYBEAN OIL
     Indication: TOXICITY TO VARIOUS AGENTS
     Dosage: UNKNOWN
     Route: 042
     Dates: start: 20190820, end: 20190823
  23. QUETIAPINE. [Concomitant]
     Active Substance: QUETIAPINE
     Indication: DEPRESSION
     Route: 048
     Dates: start: 20190718
  24. POTASSIUM CHLORIDE. [Suspect]
     Active Substance: POTASSIUM CHLORIDE
     Indication: SUICIDE ATTEMPT
     Route: 042
     Dates: start: 20190820, end: 20190823
  25. FENTANYL. [Suspect]
     Active Substance: FENTANYL
     Indication: SUICIDE ATTEMPT
     Route: 042
     Dates: start: 20190821, end: 20190822
  26. THERALENE [Concomitant]
     Active Substance: TRIMEPRAZINE
     Indication: DEPRESSION
     Dosage: 4 PERCENT, ORAL DROPS SOLUTION
     Route: 048
  27. OLIMEL [Concomitant]
     Active Substance: AMINO ACIDS\DEXTROSE\SOYBEAN OIL
     Indication: SUICIDE ATTEMPT
     Route: 042
     Dates: start: 20190821, end: 20190822

REACTIONS (1)
  - Thrombophlebitis superficial [Recovered/Resolved]

NARRATIVE: CASE EVENT DATE: 20190904
